FAERS Safety Report 4389608-X (Version None)
Quarter: 2004Q3

REPORT INFORMATION
  Report Type: 
  Country: None (occurrence: None)
  Receive Date: 20040702
  Receipt Date: 20040625
  Transmission Date: 20050211
  Serious: Yes (Hospitalization)
  Sender: FDA-Public Use
  Company Number: US-MERCK-0406USA02542

PATIENT
  Age: 75 Year
  Sex: Female

DRUGS (2)
  1. [THERAPY UNSPECIFIED] [Concomitant]
     Route: 065
  2. ZOCOR [Suspect]
     Route: 048
     Dates: start: 19970101, end: 19970101

REACTIONS (2)
  - HEPATITIS [None]
  - MYOCARDIAL INFARCTION [None]
